FAERS Safety Report 18572717 (Version 3)
Quarter: 2022Q3

REPORT INFORMATION
  Report Type: Spontaneous
  Country: FR (occurrence: FR)
  Receive Date: 20201202
  Receipt Date: 20220809
  Transmission Date: 20221027
  Serious: Yes (Hospitalization, Other)
  Sender: FDA-Public Use
  Company Number: FR-MLMSERVICE-20201118-2583692-1

PATIENT
  Age: 54 Year
  Sex: Female
  Weight: 67 kg

DRUGS (6)
  1. RISEDRONIC ACID [Suspect]
     Active Substance: RISEDRONIC ACID
     Indication: Vitamin D decreased
     Dosage: 75 MILLIGRAM
     Route: 065
     Dates: start: 201901, end: 201902
  2. PREDNISONE [Concomitant]
     Active Substance: PREDNISONE
     Indication: Necrotising myositis
     Dosage: 10 MILLIGRAM, ONCE A DAY
     Route: 065
     Dates: start: 2003
  3. PREDNISONE [Concomitant]
     Active Substance: PREDNISONE
     Dosage: 60 MILLIGRAM, ONCE A DAY
     Route: 065
     Dates: start: 201812
  4. PREDNISONE [Concomitant]
     Active Substance: PREDNISONE
     Dosage: UNK
     Route: 065
     Dates: start: 2004
  5. METHOTREXATE [Concomitant]
     Active Substance: METHOTREXATE
     Indication: Necrotising myositis
     Dosage: 25 MILLIGRAM, EVERY WEEK
     Route: 065
     Dates: start: 2003
  6. METHOTREXATE [Concomitant]
     Active Substance: METHOTREXATE
     Dosage: UNK
     Route: 065
     Dates: start: 2004

REACTIONS (13)
  - Condition aggravated [Recovered/Resolved]
  - Acute phase reaction [Recovered/Resolved]
  - Myositis [Recovered/Resolved]
  - Rhabdomyolysis [Recovered/Resolved]
  - Fatigue [Unknown]
  - Chromaturia [Unknown]
  - Muscular weakness [Recovering/Resolving]
  - Asthenia [Recovering/Resolving]
  - Myalgia [Recovering/Resolving]
  - Dyspnoea [Unknown]
  - Arthralgia [Recovering/Resolving]
  - Gait inability [Recovering/Resolving]
  - Spinal pain [Unknown]

NARRATIVE: CASE EVENT DATE: 20190101
